FAERS Safety Report 8890060 (Version 5)
Quarter: 2013Q3

REPORT INFORMATION
  Report Type: Spontaneous
  Country: US (occurrence: US)
  Receive Date: 20121107
  Receipt Date: 20130827
  Transmission Date: 20140515
  Serious: Yes (Death, Hospitalization, Disabling, Other)
  Sender: FDA-Public Use
  Company Number: US-009507513-1211USA002247

PATIENT
  Sex: Female

DRUGS (4)
  1. FOSAMAX [Suspect]
     Indication: OSTEOPOROSIS
     Dosage: 10 MG, QD
     Route: 048
     Dates: start: 19961118, end: 200010
  2. FOSAMAX [Suspect]
     Dosage: 70 MG, QW
     Route: 048
     Dates: start: 20010111, end: 200803
  3. ALENDRONATE SODIUM [Suspect]
     Indication: OSTEOPOROSIS
     Dosage: 70 MG, QW
     Route: 048
     Dates: start: 20080522, end: 201003
  4. ALENDRONATE SODIUM [Suspect]
     Dosage: 70 MG, QW
     Route: 048
     Dates: start: 20100427, end: 201107

REACTIONS (54)
  - Femur fracture [Not Recovered/Not Resolved]
  - Open reduction of fracture [Unknown]
  - Femur fracture [Unknown]
  - Pulmonary sepsis [Fatal]
  - Cellulitis [Unknown]
  - Incisional drainage [Unknown]
  - Staphylococcal infection [Unknown]
  - Surgery [Unknown]
  - Rib fracture [Unknown]
  - Cardiopulmonary failure [Fatal]
  - Renal failure chronic [Not Recovered/Not Resolved]
  - Mental disorder [Unknown]
  - Renal failure acute [Unknown]
  - Mastectomy [Unknown]
  - Atrial fibrillation [Recovering/Resolving]
  - Arthropod bite [Unknown]
  - Fracture nonunion [Not Recovered/Not Resolved]
  - Intramedullary rod insertion [Unknown]
  - Femur fracture [Not Recovered/Not Resolved]
  - Intramedullary rod insertion [Unknown]
  - Removal of internal fixation [Unknown]
  - Fall [Unknown]
  - Hyperkalaemia [Recovering/Resolving]
  - Hypoglycaemia [Recovering/Resolving]
  - Removal of internal fixation [Unknown]
  - Metabolic acidosis [Recovering/Resolving]
  - Confusional state [Unknown]
  - Intramedullary rod insertion [Unknown]
  - Cardio-respiratory arrest [Recovered/Resolved]
  - Escherichia urinary tract infection [Unknown]
  - Cardiac failure congestive [Not Recovered/Not Resolved]
  - Constipation [Unknown]
  - Fibromyalgia [Unknown]
  - Chronic obstructive pulmonary disease [Not Recovered/Not Resolved]
  - Anxiety [Unknown]
  - Osteoarthritis [Unknown]
  - Hyperlipidaemia [Unknown]
  - Low turnover osteopathy [Unknown]
  - Fall [Unknown]
  - Hypothyroidism [Unknown]
  - Hypertension [Unknown]
  - Tumour excision [Unknown]
  - Breast neoplasm [Unknown]
  - Hysterectomy [Unknown]
  - Appendicectomy [Unknown]
  - Cardiac failure congestive [Unknown]
  - Depression [Unknown]
  - Compression fracture [Unknown]
  - Fall [Unknown]
  - Gait disturbance [Unknown]
  - Nephrolithiasis [Unknown]
  - Renal atrophy [Unknown]
  - Insomnia [Unknown]
  - Gastrooesophageal reflux disease [Unknown]
